FAERS Safety Report 9139300 (Version 2)
Quarter: 2013Q1

REPORT INFORMATION
  Report Type: Spontaneous
  Country: TR (occurrence: TR)
  Receive Date: 20130305
  Receipt Date: 20130306
  Transmission Date: 20140127
  Serious: Yes (Other)
  Sender: FDA-Public Use
  Company Number: PHHY2013TR020708

PATIENT
  Age: 65 Year
  Sex: Female

DRUGS (1)
  1. SANDOSTATIN LAR [Suspect]
     Indication: ACROMEGALY
     Dosage: 30 MG, ONCE EVERY 28 DAYS
     Dates: start: 20111102

REACTIONS (1)
  - Gastrointestinal disorder [Unknown]
